FAERS Safety Report 4795850-6 (Version None)
Quarter: 2005Q4

REPORT INFORMATION
  Report Type: 
  Country: None (occurrence: None)
  Receive Date: 20051012
  Receipt Date: 20050930
  Transmission Date: 20060501
  Serious: Yes (Hospitalization)
  Sender: FDA-Public Use
  Company Number: PL-BRISTOL-MYERS SQUIBB COMPANY-13128384

PATIENT
  Age: 51 Year
  Sex: Female

DRUGS (3)
  1. VINFLUNINE IV [Suspect]
     Indication: NON-SMALL CELL LUNG CANCER
     Route: 042
     Dates: start: 20020724, end: 20020724
  2. CISPLATIN [Suspect]
     Indication: NON-SMALL CELL LUNG CANCER
     Route: 042
     Dates: start: 20020724, end: 20020724
  3. OMEPRAZOLE [Concomitant]
     Route: 048
     Dates: start: 20020710

REACTIONS (1)
  - GASTRITIS [None]
